FAERS Safety Report 4617306-3 (Version None)
Quarter: 2005Q1

REPORT INFORMATION
  Report Type: 
  Country: None (occurrence: None)
  Receive Date: 20050323
  Receipt Date: 20050317
  Transmission Date: 20050727
  Serious: Yes (Death)
  Sender: FDA-Public Use
  Company Number: 05-03-0427

PATIENT
  Age: 64 Year
  Sex: Male

DRUGS (1)
  1. CLOZAPINE [Suspect]
     Indication: SCHIZOPHRENIA
     Dosage: 375-450MG QD ORAL
     Route: 048
     Dates: start: 20010401, end: 20050301

REACTIONS (1)
  - LUNG NEOPLASM MALIGNANT [None]
